FAERS Safety Report 20048830 (Version 6)
Quarter: 2022Q2

REPORT INFORMATION
  Report Type: Report from Study
  Country: US (occurrence: US)
  Receive Date: 20211109
  Receipt Date: 20220615
  Transmission Date: 20220721
  Serious: No
  Sender: FDA-Public Use
  Company Number: US-NOVARTISTESTPH-NVSC2021US254276

PATIENT
  Age: 46 Year
  Sex: Female

DRUGS (1)
  1. GILENYA [Suspect]
     Active Substance: FINGOLIMOD HYDROCHLORIDE
     Indication: Relapsing-remitting multiple sclerosis
     Dosage: 0.5 MG, QD
     Route: 048
     Dates: start: 20211104

REACTIONS (10)
  - Pain in extremity [Recovering/Resolving]
  - Wheezing [Unknown]
  - Feeling abnormal [Unknown]
  - Memory impairment [Unknown]
  - Ear infection [Unknown]
  - Sinusitis [Unknown]
  - Cough [Unknown]
  - Vision blurred [Unknown]
  - Somnolence [Recovered/Resolved]
  - Drug ineffective [Unknown]

NARRATIVE: CASE EVENT DATE: 20211104
